FAERS Safety Report 4651112-9 (Version None)
Quarter: 2005Q3

REPORT INFORMATION
  Report Type: 
  Country: None (occurrence: None)
  Receive Date: 20050426
  Receipt Date: 20050331
  Transmission Date: 20060218
  Serious: Yes (Hospitalization)
  Sender: FDA-Public Use
  Company Number: 602732

PATIENT
  Age: 14 Year
  Sex: Male

DRUGS (1)
  1. HEMOFIL M [Suspect]
     Dosage: 1000 IU
     Dates: start: 20050331, end: 20050331

REACTIONS (2)
  - BRONCHOSPASM [None]
  - CHEST PAIN [None]
